FAERS Safety Report 11008480 (Version 1)
Quarter: 2015Q2

REPORT INFORMATION
  Report Type: Report from Study
  Country: US (occurrence: US)
  Receive Date: 20150410
  Receipt Date: 20150410
  Transmission Date: 20150821
  Serious: Yes (Hospitalization, Other)
  Sender: FDA-Public Use
  Company Number: US-BAYER-2014-097753

PATIENT
  Age: 81 Year
  Sex: Male
  Weight: 80.73 kg

DRUGS (9)
  1. NEXAVAR [Suspect]
     Active Substance: SORAFENIB
     Indication: HEPATIC CANCER
     Dosage: 400 MG, BID
     Route: 048
     Dates: start: 20140613
  2. TERAZOSIN [Concomitant]
     Active Substance: TERAZOSIN\TERAZOSIN HYDROCHLORIDE
  3. TIMOLOL [Concomitant]
     Active Substance: TIMOLOL
  4. ECOTRIN [Concomitant]
     Active Substance: ASPIRIN
  5. LATANOPROST. [Concomitant]
     Active Substance: LATANOPROST
  6. TRAZODONE [Concomitant]
     Active Substance: TRAZODONE HYDROCHLORIDE
  7. CALCIUM CARBONATE. [Concomitant]
     Active Substance: CALCIUM CARBONATE
  8. DILTIAZEM [Concomitant]
     Active Substance: DILTIAZEM
  9. HYDROCHLOROTHIAZIDE. [Concomitant]
     Active Substance: HYDROCHLOROTHIAZIDE

REACTIONS (16)
  - Cutis laxa [None]
  - Musculoskeletal pain [Unknown]
  - Abnormal loss of weight [Unknown]
  - Back pain [Unknown]
  - Renal pain [Unknown]
  - Insomnia [Unknown]
  - Musculoskeletal disorder [Unknown]
  - Rash [Unknown]
  - Skin fissures [Unknown]
  - Abdominal distension [Unknown]
  - Decreased appetite [Unknown]
  - Swollen tongue [Not Recovered/Not Resolved]
  - Pain in extremity [Unknown]
  - Constipation [Unknown]
  - Glossodynia [Not Recovered/Not Resolved]
  - Fluid intake reduced [Not Recovered/Not Resolved]

NARRATIVE: CASE EVENT DATE: 20140627
